FAERS Safety Report 19605263 (Version 1)
Quarter: 2021Q3

REPORT INFORMATION
  Report Type: Spontaneous
  Country: US (occurrence: US)
  Receive Date: 20210723
  Receipt Date: 20210723
  Transmission Date: 20211014
  Serious: No
  Sender: FDA-Public Use
  Company Number: US-CELGENEUS-USA-20210703609

PATIENT
  Age: 65 Year
  Sex: Male

DRUGS (2)
  1. REVLIMID [Suspect]
     Active Substance: LENALIDOMIDE
     Indication: OFF LABEL USE
     Dosage: 10 MILIGRAM
     Route: 048
     Dates: start: 20210411, end: 20210622
  2. REVLIMID [Suspect]
     Active Substance: LENALIDOMIDE
     Indication: PLASMACYTOMA
     Dosage: 25 MILIGRAM
     Route: 048
     Dates: start: 202005

REACTIONS (1)
  - Light chain analysis increased [Not Recovered/Not Resolved]

NARRATIVE: CASE EVENT DATE: 20210622
